FAERS Safety Report 8234690-2 (Version None)
Quarter: 2012Q1

REPORT INFORMATION
  Report Type: 
  Country: None (occurrence: None)
  Receive Date: 20120326
  Receipt Date: 20120316
  Transmission Date: 20120608
  Serious: Yes (Death, Other)
  Sender: FDA-Public Use
  Company Number: CR-PFIZER INC-2012073710

PATIENT
  Age: 94 Year
  Sex: Male

DRUGS (1)
  1. PANTOPRAZOLE [Suspect]

REACTIONS (1)
  - DEATH [None]
